FAERS Safety Report 20233594 (Version 3)
Quarter: 2022Q1

REPORT INFORMATION
  Report Type: Report from Study
  Country: US (occurrence: US)
  Receive Date: 20211227
  Receipt Date: 20220309
  Transmission Date: 20220424
  Serious: No
  Sender: FDA-Public Use
  Company Number: US-LUNDBECK-DKLU3041771

PATIENT
  Age: 61 Year
  Sex: Female

DRUGS (2)
  1. VYEPTI [Suspect]
     Active Substance: EPTINEZUMAB-JJMR
     Indication: Migraine
     Route: 041
     Dates: start: 20210918
  2. VYEPTI [Suspect]
     Active Substance: EPTINEZUMAB-JJMR
     Route: 042
     Dates: start: 20211217

REACTIONS (7)
  - Migraine [Recovered/Resolved]
  - Ophthalmic migraine [Recovered/Resolved]
  - Energy increased [Recovered/Resolved]
  - Pain in extremity [Recovered/Resolved]
  - Facial pain [Recovered/Resolved]
  - Erythema [Recovered/Resolved]
  - Therapeutic product effect delayed [Recovered/Resolved]

NARRATIVE: CASE EVENT DATE: 20211001
